FAERS Safety Report 4834866-8 (Version None)
Quarter: 2005Q4

REPORT INFORMATION
  Report Type: 
  Country: None (occurrence: None)
  Receive Date: 20051115
  Receipt Date: 20051103
  Transmission Date: 20060501
  Serious: Yes (Other)
  Sender: FDA-Public Use
  Company Number: HQWYE429804NOV05

PATIENT

DRUGS (1)
  1. TYGACIL [Suspect]
     Indication: ENTEROBACTER INFECTION
     Dosage: 100 MG LOADING DOSE, THEN 50 MG EVERY 12 HOURS, INTRAVENOUS
     Route: 042

REACTIONS (2)
  - ENTEROBACTER INFECTION [None]
  - PATHOGEN RESISTANCE [None]
